FAERS Safety Report 5489474-5 (Version None)
Quarter: 2007Q4

REPORT INFORMATION
  Report Type: 
  Country: None (occurrence: None)
  Receive Date: 20071018
  Receipt Date: 20071018
  Transmission Date: 20080405
  Serious: Yes (Hospitalization)
  Sender: FDA-Public Use
  Company Number: A0688472A

PATIENT
  Sex: Female

DRUGS (4)
  1. ALLI [Suspect]
  2. ANTIBIOTICS [Suspect]
  3. PAIN MEDICATION [Suspect]
  4. ANTI-VIRAL MEDICATION [Suspect]

REACTIONS (6)
  - DECREASED APPETITE [None]
  - DRUG INTERACTION [None]
  - FLUID RETENTION [None]
  - INFECTION [None]
  - MALAISE [None]
  - WEIGHT INCREASED [None]
